FAERS Safety Report 5908399-1 (Version None)
Quarter: 2008Q4

REPORT INFORMATION
  Report Type: 
  Country: None (occurrence: None)
  Receive Date: 20081006
  Receipt Date: 20080926
  Transmission Date: 20090506
  Serious: Yes (Other)
  Sender: FDA-Public Use
  Company Number: US-JNJFOC-20080906711

PATIENT
  Sex: Female

DRUGS (7)
  1. DOXIL [Suspect]
     Indication: FALLOPIAN TUBE CANCER
     Route: 042
  2. CALCIUM PLUS D [Concomitant]
     Route: 065
  3. EVISTA [Concomitant]
     Route: 065
  4. VYTORIN [Concomitant]
     Route: 065
  5. ASPIRIN [Concomitant]
     Route: 065
  6. MULTI-VITAMIN [Concomitant]
     Route: 065
  7. SALMON OIL [Concomitant]
     Route: 065

REACTIONS (2)
  - PAIN [None]
  - RASH [None]
